FAERS Safety Report 4697128-8 (Version None)
Quarter: 2005Q2

REPORT INFORMATION
  Report Type: 
  Country: None (occurrence: None)
  Receive Date: 20050620
  Receipt Date: 20050606
  Transmission Date: 20051028
  Serious: Yes (Other)
  Sender: FDA-Public Use
  Company Number: 2005086346

PATIENT
  Age: 75 Year
  Sex: Female

DRUGS (2)
  1. DETROL LA [Suspect]
     Indication: HYPERTONIC BLADDER
  2. DITROPAN XL [Suspect]
     Indication: HYPERTONIC BLADDER

REACTIONS (1)
  - PROLAPSE REPAIR [None]
